FAERS Safety Report 10954684 (Version 1)
Quarter: 2015Q1

REPORT INFORMATION
  Report Type: Report from Study
  Country: US (occurrence: US)
  Receive Date: 20150325
  Receipt Date: 20150325
  Transmission Date: 20150721
  Serious: Yes (Hospitalization)
  Sender: FDA-Public Use
  Company Number: US-ABBVIE-15K-163-1346277-00

PATIENT
  Age: 66 Year
  Sex: Female
  Weight: 66.28 kg

DRUGS (8)
  1. HUMIRA [Suspect]
     Active Substance: ADALIMUMAB
     Indication: CROHN^S DISEASE
     Route: 065
     Dates: start: 20150109, end: 20150109
  2. OMEPRAZOLE. [Concomitant]
     Active Substance: OMEPRAZOLE
     Indication: PRODUCT USED FOR UNKNOWN INDICATION
  3. HUMIRA [Suspect]
     Active Substance: ADALIMUMAB
     Route: 065
     Dates: start: 20150123, end: 20150123
  4. HUMIRA [Suspect]
     Active Substance: ADALIMUMAB
     Route: 065
     Dates: start: 20150206
  5. ALEVE [Concomitant]
     Active Substance: NAPROXEN SODIUM
     Indication: PRODUCT USED FOR UNKNOWN INDICATION
  6. TYLENOL [Concomitant]
     Active Substance: ACETAMINOPHEN
     Indication: PRODUCT USED FOR UNKNOWN INDICATION
  7. APREZIN [Concomitant]
     Indication: PRODUCT USED FOR UNKNOWN INDICATION
  8. RESTASIS [Concomitant]
     Active Substance: CYCLOSPORINE
     Indication: PRODUCT USED FOR UNKNOWN INDICATION

REACTIONS (16)
  - Painful defaecation [Recovering/Resolving]
  - Device issue [Unknown]
  - Vomiting [Recovered/Resolved]
  - Feeling cold [Not Recovered/Not Resolved]
  - Incorrect dose administered [Unknown]
  - Back pain [Not Recovered/Not Resolved]
  - Crohn^s disease [Recovering/Resolving]
  - Dizziness [Not Recovered/Not Resolved]
  - Rectal haemorrhage [Recovering/Resolving]
  - Pyrexia [Recovered/Resolved]
  - Injection site extravasation [Unknown]
  - Bacterial infection [Recovering/Resolving]
  - Body temperature decreased [Recovering/Resolving]
  - Incorrect dose administered [Unknown]
  - White blood cell count increased [Unknown]
  - Device issue [Recovered/Resolved]

NARRATIVE: CASE EVENT DATE: 201502
